FAERS Safety Report 22601323 (Version 1)
Quarter: 2023Q2

REPORT INFORMATION
  Report Type: Spontaneous
  Country: US (occurrence: None)
  Receive Date: 20230613
  Receipt Date: 20230613
  Transmission Date: 20230722
  Serious: Yes (unspecified)
  Sender: FDA-Public Use
  Company Number: None

PATIENT
  Age: 76 Year
  Sex: Female

DRUGS (1)
  1. PIRFENIDONE [Suspect]
     Active Substance: PIRFENIDONE
     Indication: Interstitial lung disease
     Dosage: FREQUENCY : 3 TIMES A DAY;?
     Route: 048
     Dates: start: 20230524, end: 20230527

REACTIONS (5)
  - Dyspnoea [None]
  - Insomnia [None]
  - Heart rate increased [None]
  - Wheezing [None]
  - Oxygen saturation decreased [None]

NARRATIVE: CASE EVENT DATE: 20230529
